FAERS Safety Report 6382550-4 (Version None)
Quarter: 2009Q3

REPORT INFORMATION
  Report Type: 
  Country: None (occurrence: None)
  Receive Date: 20090930
  Receipt Date: 20090924
  Transmission Date: 20100115
  Serious: Yes (Hospitalization)
  Sender: FDA-Public Use
  Company Number: A0808879A

PATIENT
  Age: 37 Year
  Sex: Male

DRUGS (3)
  1. LAMICTAL [Suspect]
     Indication: BIPOLAR DISORDER
     Dosage: 50MG PER DAY
     Route: 048
     Dates: start: 20090722, end: 20090920
  2. ZYPREXA [Concomitant]
  3. VITAMIN B-12 [Concomitant]

REACTIONS (12)
  - BONE MARROW FAILURE [None]
  - CANDIDIASIS [None]
  - COUGH [None]
  - DIARRHOEA [None]
  - EAR PAIN [None]
  - INFLUENZA [None]
  - INFLUENZA LIKE ILLNESS [None]
  - OROPHARYNGEAL PAIN [None]
  - PULMONARY MYCOSIS [None]
  - PYREXIA [None]
  - VERTIGO [None]
  - WHITE BLOOD CELL COUNT DECREASED [None]
